FAERS Safety Report 17877168 (Version 3)
Quarter: 2020Q3

REPORT INFORMATION
  Report Type: Report from Study
  Country: US (occurrence: US)
  Receive Date: 20200609
  Receipt Date: 20200910
  Transmission Date: 20201103
  Serious: Yes (Other)
  Sender: FDA-Public Use
  Company Number: US-GLAXOSMITHKLINE-US2020AMR095279

PATIENT
  Sex: Female

DRUGS (2)
  1. NIRAPARIB [Suspect]
     Active Substance: NIRAPARIB
     Indication: OVARIAN CANCER
     Dosage: 200 MG, QD
     Dates: start: 202004
  2. NIRAPARIB [Suspect]
     Active Substance: NIRAPARIB
     Dosage: 200 MG, QD
     Dates: start: 20200612

REACTIONS (8)
  - Weight decreased [Unknown]
  - Abdominal pain upper [Recovered/Resolved]
  - Underdose [Unknown]
  - Metastases to lymph nodes [Unknown]
  - Oral discomfort [Unknown]
  - Fatigue [Unknown]
  - Headache [Recovered/Resolved]
  - Off label use [Unknown]
